FAERS Safety Report 6030235-6 (Version None)
Quarter: 2009Q1

REPORT INFORMATION
  Report Type: 
  Country: None (occurrence: None)
  Receive Date: 20090105
  Receipt Date: 20090105
  Transmission Date: 20090719
  Serious: Yes (Hospitalization)
  Sender: FDA-Public Use
  Company Number: None

PATIENT
  Age: 58 Year
  Sex: Male
  Weight: 58.9676 kg

DRUGS (1)
  1. AVINZA [Suspect]
     Indication: BACK PAIN
     Dosage: 1 CAPSULE TWICE DAILY PO
     Route: 048
     Dates: start: 20080415, end: 20080912

REACTIONS (7)
  - CONVULSION [None]
  - GASTRITIS [None]
  - HALLUCINATION [None]
  - INSOMNIA [None]
  - RIGHT VENTRICULAR FAILURE [None]
  - TREMOR [None]
  - WEIGHT DECREASED [None]
